FAERS Safety Report 7443067-9 (Version None)
Quarter: 2011Q2

REPORT INFORMATION
  Report Type: 
  Country: None (occurrence: None)
  Receive Date: 20110419
  Receipt Date: 20110406
  Transmission Date: 20111010
  Serious: Yes (Hospitalization)
  Sender: FDA-Public Use
  Company Number: DSJ-2011-00353

PATIENT
  Age: 65 Year
  Sex: Female

DRUGS (10)
  1. METHYLDOPA [Suspect]
     Indication: HYPERTENSION
     Dosage: PER ORAL
     Route: 048
     Dates: start: 20091201, end: 20100720
  2. HYDRALAZINE (HYDRALAZINE) (HYDRALAZINE) [Concomitant]
  3. AZATHIOPRINE SODIUM [Suspect]
     Indication: ANAEMIA HAEMOLYTIC AUTOIMMUNE
     Dosage: SEE IMAGE
     Route: 048
     Dates: start: 20110301, end: 20110301
  4. AZATHIOPRINE SODIUM [Suspect]
     Indication: ANAEMIA HAEMOLYTIC AUTOIMMUNE
     Dosage: SEE IMAGE
     Route: 048
     Dates: start: 20110301, end: 20110301
  5. METFORMIN HCL [Concomitant]
  6. BENICAR [Suspect]
     Indication: HYPERTENSION
     Dosage: 40 MG (40 MG, 1 IN 1 D), PER ORAL
     Route: 048
     Dates: start: 20091101
  7. INDAPAMIDE [Suspect]
     Dosage: SEE IMAGE
     Route: 048
     Dates: start: 20110301, end: 20110301
  8. INDAPAMIDE [Suspect]
     Dosage: SEE IMAGE
     Route: 048
     Dates: start: 20110301
  9. INDAPAMIDE [Suspect]
     Dosage: SEE IMAGE
     Route: 048
     Dates: end: 20110301
  10. PREDNISONE [Concomitant]

REACTIONS (6)
  - HYPOTENSION [None]
  - LABYRINTHITIS [None]
  - ANAEMIA HAEMOLYTIC AUTOIMMUNE [None]
  - SOMNOLENCE [None]
  - CONDITION AGGRAVATED [None]
  - DIABETES MELLITUS [None]
